FAERS Safety Report 8912364 (Version 3)
Quarter: 2015Q2

REPORT INFORMATION
  Report Type: Spontaneous
  Country: US (occurrence: US)
  Receive Date: 20121115
  Receipt Date: 20150629
  Transmission Date: 20150821
  Serious: Yes (Other)
  Sender: FDA-Public Use
  Company Number: US-PFIZER INC-2012281347

PATIENT
  Age: 8 Day
  Sex: Male
  Weight: 3.2 kg

DRUGS (5)
  1. CHLORAMPHENICOL SODIUM SUCCINATE. [Suspect]
     Active Substance: CHLORAMPHENICOL SODIUM SUCCINATE
     Dosage: 200 MG/KG/DAY IN FOUR DOSES
     Route: 042
  2. TRIMETHOPRIM. [Concomitant]
     Active Substance: TRIMETHOPRIM
     Indication: URINARY TRACT INFECTION
     Dosage: UNK
  3. SULFAMETHOXAZOLE [Concomitant]
     Active Substance: SULFAMETHOXAZOLE
     Indication: URINARY TRACT INFECTION
     Dosage: UNK
  4. AMPICILLIN [Concomitant]
     Active Substance: AMPICILLIN
     Indication: URINARY TRACT INFECTION
     Dosage: 200 MG/KG, 1X/DAY
     Route: 042
  5. GENTAMICIN. [Concomitant]
     Active Substance: GENTAMICIN
     Dosage: 6 MG/KG, 1X/DAY
     Route: 042

REACTIONS (6)
  - Tachypnoea [Recovered/Resolved]
  - Hypotension [Recovered/Resolved]
  - Overdose [Recovered/Resolved]
  - Grey syndrome neonatal [Recovered/Resolved]
  - Metabolic acidosis [Recovered/Resolved]
  - Lethargy [Recovered/Resolved]
